FAERS Safety Report 5249542-X (Version None)
Quarter: 2007Q1

REPORT INFORMATION
  Report Type: 
  Country: None (occurrence: None)
  Receive Date: 20070228
  Receipt Date: 20060206
  Transmission Date: 20070707
  Serious: No
  Sender: FDA-Public Use
  Company Number: US-GLAXOSMITHKLINE-A0592508A

PATIENT
  Sex: Female

DRUGS (6)
  1. IMITREX [Suspect]
     Indication: MIGRAINE
     Dosage: 6MG SINGLE DOSE
     Route: 058
  2. IMITREX [Suspect]
     Route: 048
  3. TOPAMAX [Concomitant]
  4. NUBAIN [Concomitant]
  5. LITHIUM CARBONATE [Concomitant]
  6. TRAZODONE HCL [Concomitant]

REACTIONS (1)
  - DRUG INEFFECTIVE [None]
